FAERS Safety Report 21009853 (Version 1)
Quarter: 2022Q2

REPORT INFORMATION
  Report Type: Spontaneous
  Country: US (occurrence: US)
  Receive Date: 20220627
  Receipt Date: 20220627
  Transmission Date: 20220720
  Serious: Yes (Hospitalization, Other)
  Sender: FDA-Public Use
  Company Number: US-SANOFI-01158190

PATIENT
  Age: 63 Year
  Sex: Female

DRUGS (4)
  1. DUPIXENT [Suspect]
     Active Substance: DUPILUMAB
     Indication: Asthma
     Dosage: UNK UNK, 1X
     Route: 058
     Dates: start: 20220323, end: 20220323
  2. DUPIXENT [Suspect]
     Active Substance: DUPILUMAB
     Indication: Sinusitis
     Dosage: 300 MG, QOW
     Route: 058
     Dates: start: 2022, end: 20220406
  3. DUPIXENT [Suspect]
     Active Substance: DUPILUMAB
     Indication: Nasal polyps
  4. FASENRA [Concomitant]
     Active Substance: BENRALIZUMAB

REACTIONS (7)
  - Eosinophilic pneumonia [Unknown]
  - Hyponatraemia [Unknown]
  - Eosinophil count decreased [Unknown]
  - Cough [Unknown]
  - Sneezing [Unknown]
  - Drug hypersensitivity [Unknown]
  - Product use in unapproved indication [Unknown]

NARRATIVE: CASE EVENT DATE: 20220101
